FAERS Safety Report 8166591-2 (Version None)
Quarter: 2012Q1

REPORT INFORMATION
  Report Type: 
  Country: None (occurrence: None)
  Receive Date: 20120221
  Receipt Date: 20120207
  Transmission Date: 20120608
  Serious: Yes (Hospitalization)
  Sender: FDA-Public Use
  Company Number: SG-DEXPHARM-20120041

PATIENT
  Age: 84 Year
  Sex: Male

DRUGS (5)
  1. OMEPRAZOLE [Suspect]
  2. METRONIDAZOLE [Suspect]
  3. ALFUZOSIN HYDROCHLORIDE [Suspect]
  4. AMOXICILLIN AND CLAVULANATE POTASSIUM [Suspect]
  5. CEFTRIAXONE [Suspect]

REACTIONS (1)
  - STEVENS-JOHNSON SYNDROME [None]
